FAERS Safety Report 24660363 (Version 1)
Quarter: 2024Q4

REPORT INFORMATION
  Report Type: Spontaneous
  Country: US (occurrence: None)
  Receive Date: 20241124
  Receipt Date: 20241124
  Transmission Date: 20250114
  Serious: Yes (Other)
  Sender: Public
  Company Number: None

PATIENT
  Age: 36 Year
  Sex: Female
  Weight: 60.75 kg

DRUGS (4)
  1. DORYX [Suspect]
     Active Substance: DOXYCYCLINE HYCLATE
     Indication: Perioral dermatitis
     Dosage: 1 TABLET DAILY ORAL
     Route: 048
     Dates: start: 20241106, end: 20241122
  2. ALBUTEROL [Concomitant]
     Active Substance: ALBUTEROL
  3. SPIRONOLACTONE [Concomitant]
     Active Substance: SPIRONOLACTONE
  4. PAXIL [Concomitant]
     Active Substance: PAROXETINE HYDROCHLORIDE

REACTIONS (3)
  - Headache [None]
  - Nausea [None]
  - Diarrhoea [None]

NARRATIVE: CASE EVENT DATE: 20241123
